FAERS Safety Report 14788717 (Version 1)
Quarter: 2018Q2

REPORT INFORMATION
  Report Type: Spontaneous
  Country: US (occurrence: US)
  Receive Date: 20180423
  Receipt Date: 20180423
  Transmission Date: 20180711
  Serious: No
  Sender: FDA-Public Use
  Company Number: US-BIOGEN-2018BI00557588

PATIENT
  Age: 50 Year
  Sex: Female

DRUGS (1)
  1. PLEGRIDY [Suspect]
     Active Substance: PEGINTERFERON BETA-1A
     Indication: MULTIPLE SCLEROSIS
     Route: 058
     Dates: start: 20150518

REACTIONS (4)
  - Device malfunction [Unknown]
  - Weight decreased [Unknown]
  - Skin atrophy [Not Recovered/Not Resolved]
  - Injection site bruising [Recovered/Resolved with Sequelae]

NARRATIVE: CASE EVENT DATE: 20150518
